FAERS Safety Report 8494275-X (Version None)
Quarter: 2012Q2

REPORT INFORMATION
  Report Type: 
  Country: None (occurrence: None)
  Receive Date: 20120628
  Receipt Date: 20120615
  Transmission Date: 20120825
  Serious: Yes (Death)
  Sender: FDA-Public Use
  Company Number: JP-2012-15550

PATIENT
  Age: 64 Year
  Sex: Female
  Weight: 67 kg

DRUGS (5)
  1. HANP (CARPERITIDE) [Concomitant]
  2. SAMSCA [Suspect]
     Indication: CARDIAC FAILURE CHRONIC
     Dosage: 7.5 MG MILLIGRAM(S), DAILY DOSE, ORAL, 15 MG MILLIGRAM(S), DAILY DOSE, ORAL
     Route: 048
     Dates: end: 20111028
  3. SAMSCA [Suspect]
     Indication: CONGESTIVE CARDIOMYOPATHY
     Dosage: 7.5 MG MILLIGRAM(S), DAILY DOSE, ORAL, 15 MG MILLIGRAM(S), DAILY DOSE, ORAL
     Route: 048
     Dates: end: 20111028
  4. SAMSCA [Suspect]
     Indication: CARDIAC FAILURE CHRONIC
     Dosage: 7.5 MG MILLIGRAM(S), DAILY DOSE, ORAL, 15 MG MILLIGRAM(S), DAILY DOSE, ORAL
     Route: 048
     Dates: start: 20110909
  5. SAMSCA [Suspect]
     Indication: CONGESTIVE CARDIOMYOPATHY
     Dosage: 7.5 MG MILLIGRAM(S), DAILY DOSE, ORAL, 15 MG MILLIGRAM(S), DAILY DOSE, ORAL
     Route: 048
     Dates: start: 20110909

REACTIONS (1)
  - CARDIAC FAILURE [None]
